FAERS Safety Report 10011564 (Version 1)
Quarter: 2014Q1

REPORT INFORMATION
  Report Type: Report from Study
  Country: US (occurrence: US)
  Receive Date: 20140314
  Receipt Date: 20140314
  Transmission Date: 20141002
  Serious: Yes (Other)
  Sender: FDA-Public Use
  Company Number: US-ASTELLAS-2014US002483

PATIENT
  Age: 48 Year
  Sex: Male

DRUGS (2)
  1. ERLOTINIB TABLET [Suspect]
     Indication: ADENOID CYSTIC CARCINOMA
     Dosage: 75 MG, UID/QD
     Route: 048
  2. GLEEVAC [Concomitant]
     Indication: LEUKAEMIA
     Dosage: UNK
     Route: 065

REACTIONS (3)
  - Off label use [Unknown]
  - Dacryostenosis acquired [Unknown]
  - Vision blurred [Unknown]
